FAERS Safety Report 8426890-3 (Version None)
Quarter: 2012Q2

REPORT INFORMATION
  Report Type: 
  Country: None (occurrence: None)
  Receive Date: 20120531
  Receipt Date: 20120524
  Transmission Date: 20120825
  Serious: Yes (Hospitalization, Other)
  Sender: FDA-Public Use
  Company Number: 2011SP035860

PATIENT
  Age: 25 Year
  Sex: Female
  Weight: 116.5744 kg

DRUGS (1)
  1. NUVARING [Suspect]
     Indication: CONTRACEPTION
     Dates: start: 20100724, end: 20100801

REACTIONS (6)
  - CONSTIPATION [None]
  - LEUKOCYTOSIS [None]
  - PULMONARY EMBOLISM [None]
  - CHOLELITHIASIS [None]
  - ANTICOAGULATION DRUG LEVEL BELOW THERAPEUTIC [None]
  - DEEP VEIN THROMBOSIS [None]
